FAERS Safety Report 7115443-5 (Version None)
Quarter: 2010Q4

REPORT INFORMATION
  Report Type: 
  Country: None (occurrence: None)
  Receive Date: 20101122
  Receipt Date: 20100808
  Transmission Date: 20110411
  Serious: No
  Sender: FDA-Public Use
  Company Number: US-BAYER-200934975NA

PATIENT
  Age: 58 Year
  Sex: Female
  Weight: 61 kg

DRUGS (2)
  1. CLIMARA PRO [Suspect]
     Indication: HOT FLUSH
     Route: 062
  2. CLIMARA PRO [Suspect]
     Route: 062
     Dates: start: 20060101

REACTIONS (3)
  - INSOMNIA [None]
  - LIMB DISCOMFORT [None]
  - VAGINAL HAEMORRHAGE [None]
